FAERS Safety Report 11391214 (Version 1)
Quarter: 2015Q3

REPORT INFORMATION
  Report Type: Spontaneous
  Country: GB (occurrence: None)
  Receive Date: 20150813
  Receipt Date: 20150813
  Transmission Date: 20151125
  Serious: Yes (Life-Threatening, Disabling, Other)
  Sender: FDA-Public Use
  Company Number: CO-ZO-GB-2015-044

PATIENT
  Age: 55 Year
  Sex: Female
  Weight: 63 kg

DRUGS (3)
  1. AMITRIPTYLINE (AMITRIPTYLINE) [Concomitant]
     Active Substance: AMITRIPTYLINE
  2. ZONEGRAN [Suspect]
     Active Substance: ZONISAMIDE
     Indication: MIGRAINE
     Dosage: 100 MG,  2 IN 1 D, ORAL
     Route: 048
     Dates: start: 201501, end: 201505
  3. CANDESARTAN (CANDESARTAN) [Concomitant]
     Active Substance: CANDESARTAN

REACTIONS (1)
  - Liver injury [None]

NARRATIVE: CASE EVENT DATE: 2015
